FAERS Safety Report 7318582-9 (Version None)
Quarter: 2011Q1

REPORT INFORMATION
  Report Type: 
  Country: None (occurrence: None)
  Receive Date: 20110228
  Receipt Date: 20110217
  Transmission Date: 20110831
  Serious: Yes (Other)
  Sender: FDA-Public Use
  Company Number: BR-US-EMD SERONO, INC.-7029915

PATIENT
  Sex: Male

DRUGS (3)
  1. REBIF [Suspect]
     Dates: start: 20101101
  2. SINVASTATINE [Concomitant]
  3. REBIF [Suspect]
     Indication: RELAPSING-REMITTING MULTIPLE SCLEROSIS
     Dates: start: 20050101, end: 20101101

REACTIONS (3)
  - IMPAIRED HEALING [None]
  - FALL [None]
  - FEMUR FRACTURE [None]
